FAERS Safety Report 14921540 (Version 3)
Quarter: 2018Q4

REPORT INFORMATION
  Report Type: Spontaneous
  Country: SA (occurrence: SA)
  Receive Date: 20180522
  Receipt Date: 20181206
  Transmission Date: 20190204
  Serious: Yes (Death)
  Sender: FDA-Public Use
  Company Number: SA-BEH-2018090825

PATIENT
  Age: 10 Year
  Sex: Female
  Weight: 29 kg

DRUGS (1)
  1. HAEMATE P [Suspect]
     Active Substance: ANTIHEMOPHILIC FACTOR HUMAN
     Indication: VON WILLEBRAND^S DISEASE
     Dosage: 2400 IU, TOT
     Route: 042

REACTIONS (1)
  - Drug ineffective [Fatal]
